FAERS Safety Report 9479543 (Version 1)
Quarter: 2013Q3

REPORT INFORMATION
  Report Type: Spontaneous
  Country: FR (occurrence: FR)
  Receive Date: 20130827
  Receipt Date: 20130827
  Transmission Date: 20140515
  Serious: Yes (Hospitalization)
  Sender: FDA-Public Use
  Company Number: FR-B.I. PHARMACEUTICALS,INC./RIDGEFIELD-2013-FF-02138FF

PATIENT
  Age: 60 Year
  Sex: Male

DRUGS (5)
  1. TWYNSTA [Suspect]
     Dosage: 40MG/5 MG
     Route: 048
     Dates: end: 20130704
  2. EUCREAS [Suspect]
     Route: 048
     Dates: end: 20130704
  3. BISOPROLOL HYDROCHLOROTHIAZIDE WINTHROP [Suspect]
     Dosage: 10MG/6.25MG
     Route: 048
     Dates: start: 201303, end: 20130704
  4. DOGMATIL [Suspect]
     Dosage: 200 MG
     Route: 048
     Dates: end: 20130704
  5. TANAKAN [Suspect]
     Route: 048
     Dates: end: 20130704

REACTIONS (5)
  - Rash maculo-papular [Recovered/Resolved]
  - Oedema peripheral [Recovered/Resolved]
  - Dermatitis bullous [Recovered/Resolved]
  - Purpura [Recovered/Resolved]
  - Pruritus [Recovered/Resolved]
